FAERS Safety Report 7235668-8 (Version None)
Quarter: 2011Q1

REPORT INFORMATION
  Report Type: 
  Country: None (occurrence: None)
  Receive Date: 20110120
  Receipt Date: 20110117
  Transmission Date: 20110831
  Serious: Yes (Death, Other)
  Sender: FDA-Public Use
  Company Number: PHHY2010JP88288

PATIENT
  Age: 40 Year
  Sex: Female
  Weight: 62 kg

DRUGS (7)
  1. NEORAL [Suspect]
     Indication: SYSTEMIC LUPUS ERYTHEMATOSUS
     Dosage: UNK
  2. PIPERACILLIN [Concomitant]
  3. TAZOBACTAM [Concomitant]
  4. VANCOMYCIN [Concomitant]
  5. PREDNISOLONE [Concomitant]
     Indication: SYSTEMIC LUPUS ERYTHEMATOSUS
     Dosage: 50 MG, UNK
     Route: 048
  6. CYCLOPHOSPHAMIDE [Concomitant]
     Indication: SYSTEMIC LUPUS ERYTHEMATOSUS
     Dosage: UNK
  7. MEROPENEM [Concomitant]

REACTIONS (17)
  - DIFFUSE ALVEOLAR DAMAGE [None]
  - WHITE BLOOD CELL COUNT DECREASED [None]
  - OSTEOPOROSIS [None]
  - MYOCARDIAL INFARCTION [None]
  - CLOSTRIDIUM TEST POSITIVE [None]
  - CORONARY ARTERY STENOSIS [None]
  - HAEMATOCHEZIA [None]
  - MELAENA [None]
  - UTERINE LEIOMYOMA [None]
  - PULMONARY ALVEOLAR HAEMORRHAGE [None]
  - GASTRITIS EROSIVE [None]
  - PULMONARY OEDEMA [None]
  - CYTOMEGALOVIRUS INFECTION [None]
  - HISTIOCYTOSIS HAEMATOPHAGIC [None]
  - SHOCK [None]
  - INFECTION [None]
  - SPLENIC INFARCTION [None]
